FAERS Safety Report 21689148 (Version 1)
Quarter: 2022Q4

REPORT INFORMATION
  Report Type: Spontaneous
  Country: US (occurrence: None)
  Receive Date: 20221206
  Receipt Date: 20221206
  Transmission Date: 20230113
  Serious: Yes (Other)
  Sender: FDA-Public Use
  Company Number: None

PATIENT
  Age: 46 Year
  Sex: Female
  Weight: 56.7 kg

DRUGS (1)
  1. XYREM [Suspect]
     Active Substance: SODIUM OXYBATE
     Indication: Narcolepsy
     Dosage: OTHER QUANTITY : 1 DILUTED MIXTURE;?OTHER FREQUENCY : BED + 4HRS LATER;?
     Route: 048
     Dates: start: 20121201

REACTIONS (6)
  - Disorientation [None]
  - Confusional state [None]
  - Fall [None]
  - Head injury [None]
  - Product preparation error [None]
  - Abnormal behaviour [None]

NARRATIVE: CASE EVENT DATE: 20221205
